FAERS Safety Report 24214992 (Version 3)
Quarter: 2025Q2

REPORT INFORMATION
  Report Type: Spontaneous
  Country: PK (occurrence: PK)
  Receive Date: 20240815
  Receipt Date: 20250521
  Transmission Date: 20250716
  Serious: Yes (Other)
  Sender: AMGEN
  Company Number: PK-PFIZER INC-2019452477

PATIENT
  Age: 21 Year
  Sex: Female
  Weight: 68 kg

DRUGS (12)
  1. ENBREL [Suspect]
     Active Substance: ETANERCEPT
     Indication: Juvenile idiopathic arthritis
     Route: 065
     Dates: start: 2017
  2. ENBREL [Suspect]
     Active Substance: ETANERCEPT
     Route: 065
     Dates: start: 20191025
  3. ENBREL [Suspect]
     Active Substance: ETANERCEPT
     Route: 065
  4. ENBREL [Suspect]
     Active Substance: ETANERCEPT
     Route: 058
  5. ENBREL [Suspect]
     Active Substance: ETANERCEPT
     Route: 058
     Dates: start: 202109
  6. ENBREL [Suspect]
     Active Substance: ETANERCEPT
     Dosage: 40 MG, EVERY 3 WEEK
     Route: 058
     Dates: start: 20220311
  7. ENBREL [Suspect]
     Active Substance: ETANERCEPT
     Dosage: 50 MG, WEEKLY
     Route: 058
     Dates: start: 201910
  8. Berica [Concomitant]
     Indication: Product used for unknown indication
     Dosage: 60MG, 1-0-0, IN MORNING
     Route: 065
  9. Calsan-dos [Concomitant]
     Indication: Product used for unknown indication
     Dosage: UNK, 1X/DAY
     Route: 065
  10. DURAGESIC [Concomitant]
     Active Substance: FENTANYL
     Indication: Product used for unknown indication
     Route: 065
  11. Nuberol [Concomitant]
     Indication: Product used for unknown indication
     Route: 065
  12. VITAMIN D2 [Concomitant]
     Active Substance: ERGOCALCIFEROL
     Indication: Product used for unknown indication
     Dosage: 1+0+0, MORNING
     Route: 065

REACTIONS (8)
  - Osteonecrosis [Unknown]
  - Weight decreased [Unknown]
  - Arthralgia [Unknown]
  - Red blood cell sedimentation rate increased [Unknown]
  - Joint swelling [Unknown]
  - Off label use [Unknown]
  - Intentional product misuse [Unknown]
  - Off label use [Unknown]

NARRATIVE: CASE EVENT DATE: 20220311
